FAERS Safety Report 7355344-0 (Version None)
Quarter: 2011Q1

REPORT INFORMATION
  Report Type: 
  Country: None (occurrence: None)
  Receive Date: 20110316
  Receipt Date: 20110307
  Transmission Date: 20110831
  Serious: Yes (Hospitalization)
  Sender: FDA-Public Use
  Company Number: TR-MEDIMMUNE-MEDI-0012819

PATIENT
  Sex: Female
  Weight: 5.8 kg

DRUGS (1)
  1. SYNAGIS [Suspect]
     Route: 030
     Dates: start: 20110124, end: 20110124

REACTIONS (4)
  - CYANOSIS [None]
  - DYSPHAGIA [None]
  - DYSPNOEA [None]
  - PNEUMONIA [None]
